FAERS Safety Report 11664330 (Version 1)
Quarter: 2015Q4

REPORT INFORMATION
  Report Type: Spontaneous
  Country: CA (occurrence: None)
  Receive Date: 20151026
  Receipt Date: 20151026
  Transmission Date: 20160304
  Serious: No
  Sender: FDA-Public Use
  Company Number: None

PATIENT
  Age: 38 Year
  Sex: Male
  Weight: 106.6 kg

DRUGS (5)
  1. PERCOCET [Concomitant]
     Active Substance: ACETAMINOPHEN\OXYCODONE HYDROCHLORIDE
  2. MULTI VITAMIN [Concomitant]
     Active Substance: VITAMINS
  3. IRON PILL [Concomitant]
     Active Substance: IRON
  4. IBUPROFEN. [Concomitant]
     Active Substance: IBUPROFEN
  5. XARELTO [Suspect]
     Active Substance: RIVAROXABAN
     Indication: DEEP VEIN THROMBOSIS
     Dosage: 1 PILL
     Route: 048
     Dates: start: 20150729, end: 20151025

REACTIONS (3)
  - Hair growth abnormal [None]
  - Alopecia [None]
  - Drug interaction [None]

NARRATIVE: CASE EVENT DATE: 20151025
